FAERS Safety Report 9421738 (Version 1)
Quarter: 2013Q3

REPORT INFORMATION
  Report Type: Spontaneous
  Country: US (occurrence: US)
  Receive Date: 20130726
  Receipt Date: 20130726
  Transmission Date: 20140515
  Serious: No
  Sender: FDA-Public Use
  Company Number: US-009507513-1307USA010446

PATIENT
  Age: 60 Year
  Sex: Female

DRUGS (2)
  1. INVANZ [Suspect]
     Indication: SKIN ULCER
  2. VANCOMYCIN [Concomitant]

REACTIONS (2)
  - Local swelling [Recovered/Resolved]
  - Rash [Recovered/Resolved]
